FAERS Safety Report 7400449-9 (Version None)
Quarter: 2011Q2

REPORT INFORMATION
  Report Type: 
  Country: None (occurrence: None)
  Receive Date: 20110407
  Receipt Date: 20110330
  Transmission Date: 20111010
  Serious: Yes (Death, Hospitalization, Other)
  Sender: FDA-Public Use
  Company Number: US-BAXTER-2011BH003650

PATIENT
  Age: 60 Year
  Sex: Male

DRUGS (1)
  1. HEPARIN SODIUM INJECTION [Suspect]
     Indication: HAEMODIALYSIS
     Route: 010
     Dates: start: 20070901, end: 20071101

REACTIONS (11)
  - RENAL FAILURE CHRONIC [None]
  - SEPSIS [None]
  - HYPOTENSION [None]
  - DIARRHOEA [None]
  - CHEST PAIN [None]
  - VOMITING [None]
  - PYREXIA [None]
  - NAUSEA [None]
  - MALNUTRITION [None]
  - CONFUSIONAL STATE [None]
  - ASTHENIA [None]
